FAERS Safety Report 25481599 (Version 1)
Quarter: 2025Q2

REPORT INFORMATION
  Report Type: Spontaneous
  Country: US (occurrence: US)
  Receive Date: 20250626
  Receipt Date: 20250626
  Transmission Date: 20250717
  Serious: Yes (Other)
  Sender: NOVO NORDISK
  Company Number: US-NOVOPROD-1464059

PATIENT
  Sex: Female

DRUGS (2)
  1. TRESIBA [Suspect]
     Active Substance: INSULIN DEGLUDEC
     Indication: Product used for unknown indication
  2. OZEMPIC [Suspect]
     Active Substance: SEMAGLUTIDE
     Indication: Product used for unknown indication

REACTIONS (10)
  - Age-related macular degeneration [Not Recovered/Not Resolved]
  - Pneumonia [Recovered/Resolved]
  - Compression fracture [Not Recovered/Not Resolved]
  - Benign renal neoplasm [Not Recovered/Not Resolved]
  - Syncope [Unknown]
  - Illness [Unknown]
  - Limb injury [Unknown]
  - Gastrointestinal disorder [Unknown]
  - Blood glucose increased [Unknown]
  - Product storage error [Unknown]

NARRATIVE: CASE EVENT DATE: 20230101
